FAERS Safety Report 5847410-3 (Version None)
Quarter: 2008Q3

REPORT INFORMATION
  Report Type: 
  Country: None (occurrence: None)
  Receive Date: 20080815
  Receipt Date: 20080805
  Transmission Date: 20090109
  Serious: Yes (Other)
  Sender: FDA-Public Use
  Company Number: GB-ABBOTT-08P-167-0469140-00

PATIENT
  Sex: Female
  Weight: 59.3 kg

DRUGS (8)
  1. HUMIRA [Suspect]
     Indication: CROHN'S DISEASE
     Route: 058
     Dates: start: 20060406
  2. AZATHIOPRINE [Concomitant]
     Indication: CROHN'S DISEASE
     Route: 048
     Dates: start: 20050701
  3. SULFASALAZINE [Concomitant]
     Indication: CROHN'S DISEASE
     Route: 048
  4. FOLIC ACID [Concomitant]
     Indication: CROHN'S DISEASE
     Dosage: DAILY
     Route: 048
  5. PARAMOL-118 [Concomitant]
     Indication: CROHN'S DISEASE
     Route: 048
  6. CODEINE PHOSPHATE [Concomitant]
     Indication: PAIN MANAGEMENT
     Dosage: 30-60, DAILY
     Route: 048
  7. CODEINE PHOSPHATE [Concomitant]
     Indication: CROHN'S DISEASE
  8. TRAMADOL HCL [Concomitant]
     Indication: CROHN'S DISEASE
     Route: 048

REACTIONS (1)
  - PRECANCEROUS CELLS PRESENT [None]
